FAERS Safety Report 5051991-X (Version None)
Quarter: 2006Q3

REPORT INFORMATION
  Report Type: 
  Country: None (occurrence: None)
  Receive Date: 20060711
  Receipt Date: 20060629
  Transmission Date: 20061208
  Serious: Yes (Hospitalization)
  Sender: FDA-Public Use
  Company Number: 146411USA

PATIENT
  Age: 56 Year
  Sex: Female

DRUGS (12)
  1. ADRUCIL [Suspect]
     Indication: COLON CANCER
     Dates: start: 20041116, end: 20041116
  2. FOLINIC ACID [Suspect]
     Indication: COLON CANCER
     Dates: start: 20041116, end: 20041116
  3. ERBITUX [Suspect]
     Indication: COLON CANCER
     Dates: start: 20041116, end: 20041116
  4. IRINOTECAN [Suspect]
     Indication: COLON CANCER
     Dates: start: 20041116, end: 20041116
  5. LESCOL [Concomitant]
  6. NORVASC [Concomitant]
  7. POTASSIUM [Concomitant]
  8. CLIMARA [Concomitant]
  9. DIOVAN [Concomitant]
  10. LASIX [Concomitant]
  11. OXYCONTIN [Concomitant]
  12. PHENERGAN HCL [Concomitant]

REACTIONS (7)
  - ABDOMINAL PAIN UPPER [None]
  - BACK PAIN [None]
  - CHEST PAIN [None]
  - DIARRHOEA [None]
  - DYSPNOEA [None]
  - NAUSEA [None]
  - VOMITING [None]
